FAERS Safety Report 7578894-0 (Version None)
Quarter: 2011Q2

REPORT INFORMATION
  Report Type: 
  Country: None (occurrence: None)
  Receive Date: 20110628
  Receipt Date: 20110615
  Transmission Date: 20111010
  Serious: Yes (Hospitalization)
  Sender: FDA-Public Use
  Company Number: JP-PFIZER INC-2011089102

PATIENT
  Age: 75 Year
  Sex: Male
  Weight: 51.7 kg

DRUGS (7)
  1. HOKUNALIN [Concomitant]
     Dosage: 2 MG, 1X/DAY
     Route: 003
  2. UNIPHYL [Suspect]
     Dosage: 400 MG, 1X/DAY
     Route: 048
     Dates: end: 20110418
  3. NOVORAPID [Concomitant]
     Dosage: UNK
     Route: 058
  4. MEPTIN [Concomitant]
     Dosage: 10 UG, 1X/DAY
     Route: 048
  5. SUTENT [Suspect]
     Indication: RENAL CELL CARCINOMA
     Dosage: 37.5 MG, 1X/DAY
     Route: 048
     Dates: start: 20110411
  6. ALLOPURINOL [Suspect]
     Dosage: 100 MG, 1X/DAY
     Route: 048
     Dates: end: 20110418
  7. SPIRIVA [Concomitant]
     Dosage: 18 UG, 1X/DAY
     Route: 048

REACTIONS (2)
  - ERYTHEMA MULTIFORME [None]
  - PLATELET COUNT DECREASED [None]
